FAERS Safety Report 14671152 (Version 2)
Quarter: 2018Q3

REPORT INFORMATION
  Report Type: Report from Study
  Country: None (occurrence: BR)
  Receive Date: 20180322
  Receipt Date: 20180918
  Transmission Date: 20181010
  Serious: Yes (Hospitalization)
  Sender: FDA-Public Use
  Company Number: BR-ABBVIE-18K-020-2297373-00

PATIENT
  Age: 61 Year
  Sex: Female
  Weight: 75 kg

DRUGS (7)
  1. HUMIRA [Suspect]
     Active Substance: ADALIMUMAB
     Indication: RHEUMATOID ARTHRITIS
     Route: 058
     Dates: start: 20171207, end: 20180303
  2. AMOXICILLIN. [Concomitant]
     Active Substance: AMOXICILLIN
     Indication: INFECTION PROPHYLAXIS
  3. DIPYRONE [Concomitant]
     Active Substance: DIPYRONE
     Indication: ARTHRALGIA
  4. TECNOMET [Concomitant]
     Active Substance: METHOTREXATE
     Indication: RHEUMATOID ARTHRITIS
  5. METFORMIN [Concomitant]
     Active Substance: METFORMIN HYDROCHLORIDE
     Indication: HYPERTENSION
  6. DIPYRONE [Concomitant]
     Active Substance: DIPYRONE
     Indication: PAIN
  7. GLIBENCLAMIDE [Concomitant]
     Active Substance: GLYBURIDE
     Indication: DIABETES MELLITUS

REACTIONS (15)
  - Rheumatoid arthritis [Unknown]
  - Abdominal pain upper [Recovered/Resolved]
  - Fatigue [Recovering/Resolving]
  - Cholelithiasis [Unknown]
  - Drug ineffective [Unknown]
  - Injection site mass [Recovered/Resolved]
  - Conjunctivitis [Unknown]
  - Gastrointestinal candidiasis [Unknown]
  - Injection site pain [Recovered/Resolved]
  - Dysstasia [Unknown]
  - Nausea [Recovered/Resolved]
  - Intestinal obstruction [Unknown]
  - Gait disturbance [Unknown]
  - Oesophageal candidiasis [Unknown]
  - Hypophagia [Recovered/Resolved]

NARRATIVE: CASE EVENT DATE: 2018
